FAERS Safety Report 8389192-X (Version None)
Quarter: 2012Q2

REPORT INFORMATION
  Report Type: 
  Country: None (occurrence: None)
  Receive Date: 20120528
  Receipt Date: 20120525
  Transmission Date: 20120825
  Serious: Yes (Death, Other)
  Sender: FDA-Public Use
  Company Number: PHHY2012US044633

PATIENT

DRUGS (1)
  1. GLEEVEC [Suspect]
     Indication: SYSTEMIC SCLEROSIS
     Dosage: 400 MG, DAILY
     Route: 048

REACTIONS (4)
  - RESPIRATORY FAILURE [None]
  - INTERSTITIAL LUNG DISEASE [None]
  - PNEUMONIA [None]
  - PULMONARY HYPERTENSION [None]
